FAERS Safety Report 8186795-2 (Version None)
Quarter: 2012Q1

REPORT INFORMATION
  Report Type: 
  Country: None (occurrence: None)
  Receive Date: 20120306
  Receipt Date: 20120306
  Transmission Date: 20120608
  Serious: Yes (Life-Threatening)
  Sender: FDA-Public Use
  Company Number: None

PATIENT
  Age: 67 Year
  Sex: Male
  Weight: 136.07 kg

DRUGS (2)
  1. PREVACID [Suspect]
     Indication: GASTROOESOPHAGEAL REFLUX DISEASE
     Dates: start: 20111226, end: 20120305
  2. PREVACID [Suspect]
     Indication: BARRETT'S OESOPHAGUS
     Dates: start: 20111226, end: 20120305

REACTIONS (5)
  - EAR DISCOMFORT [None]
  - URTICARIA [None]
  - FATIGUE [None]
  - ERYTHEMA [None]
  - RASH [None]
